FAERS Safety Report 6970627 (Version 2)
Quarter: 2016Q1

REPORT INFORMATION
  Report Type: Spontaneous
  Country: FR (occurrence: FR)
  Receive Date: 20090416
  Receipt Date: 20160213
  Transmission Date: 20160526
  Serious: Yes (Other)
  Sender: FDA-Public Use
  Company Number: FR-BRISTOL-MYERS SQUIBB COMPANY-14576656

PATIENT
  Weight: 1.74 kg

DRUGS (4)
  1. AMOXICILLIN TRIHYDRATE [Suspect]
     Active Substance: AMOXICILLIN
     Indication: PRODUCT USED FOR UNKNOWN INDICATION
     Dosage: AGAIN RECEIVED ORALLY FOR 2 WEEKS
     Route: 064
  2. AMIKACIN SULFATE. [Suspect]
     Active Substance: AMIKACIN SULFATE
     Indication: PRODUCT USED FOR UNKNOWN INDICATION
     Dosage: 500 MG, QD
     Route: 064
  3. HEPARIN [Concomitant]
     Active Substance: HEPARIN SODIUM
     Indication: PRODUCT USED FOR UNKNOWN INDICATION
     Dosage: 1DF=300UI/KG
     Route: 065
  4. AMOXICILLIN EXTENDED-RELEASE [Suspect]
     Active Substance: AMOXICILLIN
     Indication: PRODUCT USED FOR UNKNOWN INDICATION
     Dosage: AGAIN RECEIVED INTRAVENOUS 200MG/KG FOUR TIMES DAILY DURING 4 WEEKS
     Route: 042

REACTIONS (5)
  - Hydrocephalus [Unknown]
  - Psychomotor retardation [Unknown]
  - Meningitis bacterial [Unknown]
  - Macrocephaly [Unknown]
  - Foetal exposure during pregnancy [Unknown]
